FAERS Safety Report 15465290 (Version 1)
Quarter: 2018Q4

REPORT INFORMATION
  Report Type: Spontaneous
  Country: US (occurrence: US)
  Receive Date: 20181004
  Receipt Date: 20181004
  Transmission Date: 20190204
  Serious: No
  Sender: FDA-Public Use
  Company Number: US-JNJFOC-20180907195

PATIENT
  Sex: Female

DRUGS (2)
  1. MENS ROGAINE EXTRA STRENGTH [Suspect]
     Active Substance: MINOXIDIL
     Route: 061
  2. MENS ROGAINE EXTRA STRENGTH [Suspect]
     Active Substance: MINOXIDIL
     Indication: ALOPECIA
     Dosage: A HALF CAP-FULL AND SOMETIMES A CAP-FULL
     Route: 061

REACTIONS (4)
  - Product use issue [Unknown]
  - Product formulation issue [Unknown]
  - Intentional product misuse [Unknown]
  - Overdose [Unknown]
